FAERS Safety Report 7852368-1 (Version None)
Quarter: 2011Q4

REPORT INFORMATION
  Report Type: 
  Country: None (occurrence: None)
  Receive Date: 20111026
  Receipt Date: 20111018
  Transmission Date: 20120403
  Serious: Yes (Hospitalization, Other)
  Sender: FDA-Public Use
  Company Number: JP-ABBOTT-11P-087-0860962-00

PATIENT
  Sex: Male
  Weight: 58 kg

DRUGS (10)
  1. HUMIRA [Suspect]
     Dates: start: 20091001, end: 20110601
  2. FAMOTIDINE [Concomitant]
     Indication: ADVERSE EVENT
     Route: 048
     Dates: start: 20040801
  3. HUMIRA [Suspect]
     Indication: RHEUMATOID ARTHRITIS
     Route: 058
     Dates: start: 20090701, end: 20091001
  4. FOLIC ACID [Concomitant]
     Indication: ADVERSE EVENT
     Route: 048
     Dates: start: 20040801
  5. ISONIAZID [Concomitant]
     Indication: ADVERSE EVENT
     Route: 048
     Dates: start: 20040801
  6. ISONIAZID [Concomitant]
     Indication: PROPHYLAXIS
  7. DICLOFENAC SODIUM [Concomitant]
     Indication: PSORIATIC ARTHROPATHY
     Route: 048
     Dates: start: 20040801
  8. FAMOTIDINE [Concomitant]
     Indication: PROPHYLAXIS
  9. METHOTREXATE [Concomitant]
     Indication: PSORIATIC ARTHROPATHY
     Route: 048
     Dates: start: 20040801
  10. FOLIC ACID [Concomitant]
     Indication: PROPHYLAXIS

REACTIONS (8)
  - RETROPERITONEAL ABSCESS [None]
  - GASTROINTESTINAL FISTULA [None]
  - STAPHYLOCOCCAL INFECTION [None]
  - PSORIATIC ARTHROPATHY [None]
  - APPENDICITIS PERFORATED [None]
  - APPENDICITIS [None]
  - HEPATIC ENZYME INCREASED [None]
  - PSORIASIS [None]
